FAERS Safety Report 5117361-0 (Version None)
Quarter: 2006Q3

REPORT INFORMATION
  Report Type: 
  Country: None (occurrence: None)
  Receive Date: 20060929
  Receipt Date: 20060817
  Transmission Date: 20061208
  Serious: Yes (Other)
  Sender: FDA-Public Use
  Company Number: US-BAYER-200615225BWH

PATIENT
  Sex: Male

DRUGS (3)
  1. NEXAVAR [Suspect]
     Indication: ANGIOSARCOMA
     Dosage: TOTAL DAILY DOSE: 800 MG  UNIT DOSE: 200 MG
     Route: 048
     Dates: start: 20060313, end: 20060706
  2. PRILOSEC [Concomitant]
  3. PERCOCET [Concomitant]

REACTIONS (2)
  - GASTROINTESTINAL FISTULA [None]
  - PULMONARY FISTULA [None]
